FAERS Safety Report 16230753 (Version 6)
Quarter: 2020Q1

REPORT INFORMATION
  Report Type: Report from Study
  Country: US (occurrence: US)
  Receive Date: 20190423
  Receipt Date: 20200219
  Transmission Date: 20200409
  Serious: Yes (Hospitalization)
  Sender: FDA-Public Use
  Company Number: US-MALLINCKRODT-T201901201

PATIENT
  Age: 42 Year
  Sex: Female

DRUGS (1)
  1. REPOSITORY CORTICOTROPIN INJECTION [Suspect]
     Active Substance: CORTICOTROPIN
     Indication: SARCOIDOSIS
     Dosage: 40 UNITS / 0.5 ML, EVERY DAY
     Route: 030
     Dates: start: 20190110, end: 20190624

REACTIONS (9)
  - Pulmonary oedema [Unknown]
  - Product dose omission [Unknown]
  - Pain [Not Recovered/Not Resolved]
  - Treatment noncompliance [Not Recovered/Not Resolved]
  - Gout [Not Recovered/Not Resolved]
  - Injection site bruising [Recovering/Resolving]
  - Chest pain [Not Recovered/Not Resolved]
  - Cardiac failure [Unknown]
  - Malaise [Not Recovered/Not Resolved]

NARRATIVE: CASE EVENT DATE: 2019
